FAERS Safety Report 18941128 (Version 2)
Quarter: 2021Q3

REPORT INFORMATION
  Report Type: Report from Study
  Country: JP (occurrence: JP)
  Receive Date: 20210225
  Receipt Date: 20210818
  Transmission Date: 20211014
  Serious: Yes (Hospitalization, Other)
  Sender: FDA-Public Use
  Company Number: JP-JNJFOC-A-CH2019-189409

PATIENT
  Age: 35 Year
  Sex: Female

DRUGS (32)
  1. BIOFERMIN R [Concomitant]
     Active Substance: DIETARY SUPPLEMENT\PROBIOTICS
     Indication: PROPHYLAXIS AGAINST DIARRHOEA
     Route: 048
     Dates: start: 20170315, end: 20170321
  2. CEFZON [Concomitant]
     Indication: DEVICE RELATED INFECTION
     Route: 048
     Dates: start: 20170531, end: 20170606
  3. CEFZON [Concomitant]
     Indication: DEVICE RELATED INFECTION
     Route: 048
     Dates: start: 20180228, end: 20180304
  4. FUROSEMIDE. [Concomitant]
     Active Substance: FUROSEMIDE
     Indication: RIGHT VENTRICULAR FAILURE
     Route: 048
     Dates: start: 19900411
  5. ADCIRCA [Concomitant]
     Active Substance: TADALAFIL
     Indication: PULMONARY ARTERIAL HYPERTENSION
     Route: 048
     Dates: start: 20101020
  6. CEFAZOLIN SODIUM. [Concomitant]
     Active Substance: CEFAZOLIN SODIUM
     Route: 048
     Dates: start: 20170628, end: 20170705
  7. CEFAZOLIN SODIUM. [Concomitant]
     Active Substance: CEFAZOLIN SODIUM
     Route: 048
     Dates: start: 20180328, end: 20180404
  8. EPOPROSTENOL. [Concomitant]
     Active Substance: EPOPROSTENOL
     Indication: PULMONARY ARTERIAL HYPERTENSION
     Route: 042
     Dates: start: 20110802
  9. BISOPROLOL [Concomitant]
     Active Substance: BISOPROLOL
     Indication: ATRIAL FIBRILLATION
     Route: 048
     Dates: start: 20180125, end: 20180529
  10. CEFZON [Concomitant]
     Indication: DEVICE RELATED INFECTION
     Route: 048
     Dates: start: 20170315, end: 20170321
  11. CEFZON [Concomitant]
     Indication: DEVICE RELATED INFECTION
     Route: 048
     Dates: start: 20170628, end: 20170705
  12. CEFZON [Concomitant]
     Indication: DEVICE RELATED INFECTION
     Route: 048
     Dates: start: 20180328, end: 20180404
  13. MINOCYCLINE HYDROCHLORIDE. [Concomitant]
     Active Substance: MINOCYCLINE HYDROCHLORIDE
     Route: 048
     Dates: start: 20180627, end: 20180711
  14. OPSUMIT [Suspect]
     Active Substance: MACITENTAN
     Indication: PULMONARY ARTERIAL HYPERTENSION
     Dosage: IN THE MORNING
     Route: 048
     Dates: start: 20170124
  15. BIOFERMIN R [Concomitant]
     Active Substance: DIETARY SUPPLEMENT\PROBIOTICS
  16. MINOCYCLINE HYDROCHLORIDE. [Concomitant]
     Active Substance: MINOCYCLINE HYDROCHLORIDE
     Route: 048
     Dates: start: 20180530, end: 20180612
  17. LIXIANA [Concomitant]
     Active Substance: EDOXABAN TOSYLATE
     Indication: ATRIAL FIBRILLATION
     Route: 048
     Dates: start: 20171106, end: 20190227
  18. OXYGEN. [Concomitant]
     Active Substance: OXYGEN
     Dosage: DOSE UNKNOWN
     Route: 055
  19. ALDACTONE A [Concomitant]
     Active Substance: SPIRONOLACTONE
     Indication: RIGHT VENTRICULAR FAILURE
     Route: 048
     Dates: start: 200203
  20. HALFDIGOXIN [Concomitant]
     Active Substance: DIGOXIN
     Indication: HYPOKALAEMIA
     Route: 048
     Dates: start: 20171026
  21. SLOW?K [Concomitant]
     Active Substance: POTASSIUM CHLORIDE
     Indication: HYPOKALAEMIA
     Route: 048
     Dates: start: 20171221
  22. MINOMYCIN [Concomitant]
     Active Substance: MINOCYCLINE HYDROCHLORIDE
     Indication: DEVICE RELATED INFECTION
     Route: 048
     Dates: start: 20180530, end: 20180612
  23. MINOMYCIN [Concomitant]
     Active Substance: MINOCYCLINE HYDROCHLORIDE
     Indication: DEVICE RELATED INFECTION
     Route: 048
     Dates: start: 20180627, end: 20180711
  24. CEFAZOLIN SODIUM. [Concomitant]
     Active Substance: CEFAZOLIN SODIUM
     Route: 048
     Dates: start: 20170531, end: 20170606
  25. CEFAZOLIN SODIUM. [Concomitant]
     Active Substance: CEFAZOLIN SODIUM
     Route: 048
     Dates: start: 20180228, end: 20180304
  26. MINOCYCLINE HYDROCHLORIDE. [Concomitant]
     Active Substance: MINOCYCLINE HYDROCHLORIDE
     Indication: DEVICE RELATED INFECTION
     Route: 042
     Dates: start: 20180812, end: 20180823
  27. DIGOXIN. [Concomitant]
     Active Substance: DIGOXIN
     Indication: RIGHT VENTRICULAR FAILURE
     Route: 048
     Dates: start: 19900411, end: 20171025
  28. EPOPROSTENOL. [Concomitant]
     Active Substance: EPOPROSTENOL
     Indication: PULMONARY ARTERIAL HYPERTENSION
     Route: 042
  29. EPOPROSTENOL. [Concomitant]
     Active Substance: EPOPROSTENOL
     Indication: PULMONARY ARTERIAL HYPERTENSION
     Route: 042
  30. BIOFERMIN R [Concomitant]
     Active Substance: DIETARY SUPPLEMENT\PROBIOTICS
     Indication: PROPHYLAXIS AGAINST DIARRHOEA
     Route: 048
     Dates: start: 20170531, end: 20170606
  31. CEFAZOLIN SODIUM. [Concomitant]
     Active Substance: CEFAZOLIN SODIUM
     Indication: DEVICE RELATED INFECTION
     Route: 042
     Dates: start: 20180806, end: 20180823
  32. CEFAZOLIN SODIUM. [Concomitant]
     Active Substance: CEFAZOLIN SODIUM
     Route: 048
     Dates: start: 20170315, end: 20170321

REACTIONS (5)
  - Cardiac ablation [Recovered/Resolved]
  - Device related infection [Recovered/Resolved]
  - Atrial fibrillation [Recovered/Resolved]
  - Cardioversion [Recovered/Resolved]
  - Anaemia [Recovered/Resolved]

NARRATIVE: CASE EVENT DATE: 20170220
